FAERS Safety Report 24890518 (Version 2)
Quarter: 2025Q3

REPORT INFORMATION
  Report Type: Spontaneous
  Country: CN (occurrence: CN)
  Receive Date: 20250127
  Receipt Date: 20250809
  Transmission Date: 20251021
  Serious: Yes (Other)
  Sender: ALEXION PHARMACEUTICALS
  Company Number: CN-ASTRAZENECA-202501CHN021575CN

PATIENT
  Age: 58 Year
  Sex: Male
  Weight: 64 kg

DRUGS (2)
  1. DAPAGLIFLOZIN [Suspect]
     Active Substance: DAPAGLIFLOZIN
     Indication: Cardiac failure
     Dosage: 10 MILLIGRAM, QD
     Dates: start: 20250117, end: 20250121
  2. RAMIPRIL [Suspect]
     Active Substance: RAMIPRIL
     Indication: Hypertension
     Dosage: 5 MILLIGRAM, QD
     Dates: start: 20250117, end: 20250121

REACTIONS (1)
  - Renal injury [Recovering/Resolving]

NARRATIVE: CASE EVENT DATE: 20250119
